FAERS Safety Report 23729249 (Version 1)
Quarter: 2024Q2

REPORT INFORMATION
  Report Type: Spontaneous
  Country: US (occurrence: US)
  Receive Date: 20240410
  Receipt Date: 20240410
  Transmission Date: 20240715
  Serious: No
  Sender: FDA-Public Use
  Company Number: US-FOUNDATIONCONSUMERHC-2024-US-001533

PATIENT
  Sex: Female

DRUGS (1)
  1. PLAN B ONE-STEP [Suspect]
     Active Substance: LEVONORGESTREL
     Indication: Post coital contraception
     Dosage: 1.5 MG X 2 DOSES
     Route: 048
     Dates: start: 20231228, end: 20231229

REACTIONS (12)
  - Intentional product misuse [Recovered/Resolved]
  - Breast tenderness [Unknown]
  - Incorrect dosage administered [Recovered/Resolved]
  - Menstruation irregular [Unknown]
  - Fatigue [Recovered/Resolved]
  - Headache [Not Recovered/Not Resolved]
  - Dysmenorrhoea [Not Recovered/Not Resolved]
  - Dizziness [Not Recovered/Not Resolved]
  - Back pain [Not Recovered/Not Resolved]
  - Pruritus [Not Recovered/Not Resolved]
  - Vaginal haemorrhage [Recovered/Resolved]
  - Pollakiuria [Recovered/Resolved]

NARRATIVE: CASE EVENT DATE: 20231201
